FAERS Safety Report 12454938 (Version 1)
Quarter: 2016Q2

REPORT INFORMATION
  Report Type: Spontaneous
  Country: US (occurrence: None)
  Receive Date: 20160609
  Receipt Date: 20160609
  Transmission Date: 20160815
  Serious: No
  Sender: FDA-Public Use
  Company Number: None

PATIENT
  Age: 26 Year
  Sex: Female
  Weight: 71.22 kg

DRUGS (1)
  1. 15 MG AUROBINDO GENERIC ADDERALL [Suspect]
     Active Substance: AMPHETAMINE ASPARTATE\AMPHETAMINE SULFATE\DEXTROAMPHETAMINE SACCHARATE\DEXTROAMPHETAMINE SULFATE
     Indication: ATTENTION DEFICIT/HYPERACTIVITY DISORDER
     Dates: start: 20160401, end: 20160608

REACTIONS (9)
  - Dizziness [None]
  - Product substitution issue [None]
  - Vertigo [None]
  - Panic attack [None]
  - Headache [None]
  - Lethargy [None]
  - Impulsive behaviour [None]
  - Attention deficit/hyperactivity disorder [None]
  - Product quality issue [None]

NARRATIVE: CASE EVENT DATE: 20160401
